FAERS Safety Report 14931694 (Version 2)
Quarter: 2018Q2

REPORT INFORMATION
  Report Type: Spontaneous
  Country: GB (occurrence: GB)
  Receive Date: 20180524
  Receipt Date: 20180611
  Transmission Date: 20180711
  Serious: Yes (Other)
  Sender: FDA-Public Use
  Company Number: GB-AUROBINDO-AUR-APL-2018-027240

PATIENT
  Sex: Female

DRUGS (2)
  1. EFAVIRENZ FILM-COATED TABLET [Suspect]
     Active Substance: EFAVIRENZ
     Indication: HIV INFECTION
     Dosage: UNK, INITIATED ON THE DAY OF REFERRAL
     Route: 048
  2. DOLUTEGRAVIR [Suspect]
     Active Substance: DOLUTEGRAVIR
     Indication: HIV INFECTION
     Dosage: UNK ()
     Route: 065

REACTIONS (6)
  - Hypertension [Unknown]
  - Stillbirth [Unknown]
  - Breast feeding [Unknown]
  - Maternal exposure during pregnancy [Recovered/Resolved]
  - Liver function test increased [Unknown]
  - Product use issue [Unknown]
